FAERS Safety Report 5228428-0 (Version None)
Quarter: 2007Q1

REPORT INFORMATION
  Report Type: 
  Country: None (occurrence: None)
  Receive Date: 20070131
  Receipt Date: 20070131
  Transmission Date: 20070707
  Serious: No
  Sender: FDA-Public Use
  Company Number: None

PATIENT
  Age: 82 Year
  Sex: Male

DRUGS (12)
  1. COUMADIN [Suspect]
     Indication: THROMBOSIS PROPHYLAXIS
     Dosage: 7.5 MG Q DAY PO
     Route: 048
     Dates: start: 20060709, end: 20060718
  2. ALDACTONE [Concomitant]
  3. CARDIZEM CD [Concomitant]
  4. DOCUSATE [Concomitant]
  5. FE SOL [Concomitant]
  6. KEPPRA [Concomitant]
  7. LASIX [Concomitant]
  8. PROVIGIL [Concomitant]
  9. AMIODARONE HCL [Concomitant]
  10. RESTORIL [Concomitant]
  11. ATIVAN [Concomitant]
  12. TEGRETOL [Concomitant]

REACTIONS (1)
  - NO ADVERSE EFFECT [None]
